FAERS Safety Report 7669564-9 (Version None)
Quarter: 2011Q3

REPORT INFORMATION
  Report Type: 
  Country: None (occurrence: None)
  Receive Date: 20110808
  Receipt Date: 20110728
  Transmission Date: 20111222
  Serious: Yes (Hospitalization, Other)
  Sender: FDA-Public Use
  Company Number: US-AMGEN-USASP2011038559

PATIENT
  Age: 35 Year
  Sex: Female

DRUGS (2)
  1. EPOGEN [Suspect]
     Indication: RENAL FAILURE CHRONIC
     Dosage: UNK
  2. LISINOPRIL [Concomitant]
     Dosage: UNK
     Dates: start: 20110601, end: 20110101

REACTIONS (5)
  - HOSPITALISATION [None]
  - LOBAR PNEUMONIA [None]
  - TRANSPLANT FAILURE [None]
  - THERAPEUTIC RESPONSE DECREASED [None]
  - IRON DEFICIENCY [None]
